FAERS Safety Report 5970583-9 (Version None)
Quarter: 2008Q4

REPORT INFORMATION
  Report Type: 
  Country: None (occurrence: None)
  Receive Date: 20081126
  Receipt Date: 20081031
  Transmission Date: 20090506
  Serious: No
  Sender: FDA-Public Use
  Company Number: US-ABBOTT-08P-163-0484993-00

PATIENT
  Sex: Male
  Weight: 122.58 kg

DRUGS (2)
  1. SIMCOR [Suspect]
     Indication: BLOOD CHOLESTEROL
     Route: 048
     Dates: start: 20081028
  2. DILTIAZEM HYDROCHLORIDE [Concomitant]
     Indication: BLOOD PRESSURE
     Route: 048

REACTIONS (1)
  - PRURITUS [None]
